FAERS Safety Report 16127311 (Version 2)
Quarter: 2019Q2

REPORT INFORMATION
  Report Type: Report from Study
  Country: PK (occurrence: PK)
  Receive Date: 20190328
  Receipt Date: 20190401
  Transmission Date: 20190711
  Serious: Yes (Death)
  Sender: FDA-Public Use
  Company Number: PHHY2019PK069553

PATIENT
  Age: 63 Year
  Sex: Female

DRUGS (1)
  1. ZOMETA [Suspect]
     Active Substance: ZOLEDRONIC ACID
     Indication: BREAST CANCER METASTATIC
     Dosage: 4 MG/ 100 ML, Q12MO
     Route: 042
     Dates: start: 20181026

REACTIONS (4)
  - Palpitations [Unknown]
  - Inappropriate schedule of product administration [Unknown]
  - Fatigue [Unknown]
  - Cardiac arrest [Fatal]

NARRATIVE: CASE EVENT DATE: 20181026
